FAERS Safety Report 5038058-1 (Version None)
Quarter: 2006Q2

REPORT INFORMATION
  Report Type: 
  Country: None (occurrence: None)
  Receive Date: 20060531
  Receipt Date: 20010321
  Transmission Date: 20061013
  Serious: Yes (Other)
  Sender: FDA-Public Use
  Company Number: CVBU2001US00942

PATIENT
  Sex: Male

DRUGS (12)
  1. VOLTAREN [Suspect]
     Indication: CATARACT OPERATION
     Dosage: 1 DROP Q15, TOPICAL OPHTH.
     Route: 047
     Dates: start: 20010228, end: 20010228
  2. KETOROLAC TROMETHAMINE [Concomitant]
  3. ALCAINE (PROXYMETACAINE HYDROCHLORIDE) [Concomitant]
  4. ALPHAGAN [Concomitant]
  5. BETIMOL (TIMOLOL) [Concomitant]
  6. CARBASTAT (CALCIUM CHLORIDE DIHYDRATE, CARBACHOL, MAGNESIUM CHLORIDE H [Concomitant]
  7. CYCLOPENTOLATE HYDROCHLORIDE [Concomitant]
  8. LIDOCAINE [Concomitant]
  9. MIDRIN (DICHLORALPHENAZONE,  ISOMETHEPTENE, PARACETAMOL) [Concomitant]
  10. OCUFLOX [Concomitant]
  11. TOBRADEX [Concomitant]
  12. VISCOTEARS (CARBOMER) [Concomitant]

REACTIONS (1)
  - CORNEAL THINNING [None]
